APPROVED DRUG PRODUCT: ZUBSOLV
Active Ingredient: BUPRENORPHINE HYDROCHLORIDE; NALOXONE HYDROCHLORIDE
Strength: EQ 8.6MG BASE;EQ 2.1MG BASE
Dosage Form/Route: TABLET;SUBLINGUAL
Application: N204242 | Product #003
Applicant: EDENBRIDGE PHARMACEUTICALS LLC DBA DEXCEL PHARMA USA
Approved: Dec 11, 2014 | RLD: Yes | RS: No | Type: RX

PATENTS:
Patent 8658198 | Expires: Dec 3, 2027
Patent 8470361 | Expires: May 22, 2030
Patent 11020388 | Expires: Sep 18, 2032
Patent 11433066 | Expires: Sep 18, 2032
Patent 11020387 | Expires: Sep 18, 2032
Patent 9259421 | Expires: Sep 18, 2032
Patent 9439900 | Expires: Sep 18, 2032
Patent 10946010 | Expires: Sep 18, 2032
Patent 8940330 | Expires: Sep 18, 2032